FAERS Safety Report 18985109 (Version 1)
Quarter: 2021Q1

REPORT INFORMATION
  Report Type: Spontaneous
  Country: KZ (occurrence: KZ)
  Receive Date: 20210309
  Receipt Date: 20210309
  Transmission Date: 20210420
  Serious: Yes (Other)
  Sender: FDA-Public Use
  Company Number: KZ-REGENERON PHARMACEUTICALS, INC.-2021-31185

PATIENT

DRUGS (2)
  1. EYLEA [Suspect]
     Active Substance: AFLIBERCEPT
     Indication: NEOVASCULAR AGE-RELATED MACULAR DEGENERATION
     Dosage: UNK, EYE UNK; TOTAL NUMBER OF DOSES UNK
  2. EYLEA [Suspect]
     Active Substance: AFLIBERCEPT
     Dosage: UNK, EYE UNK; LAST DOSE
     Dates: start: 20210223, end: 20210223

REACTIONS (2)
  - Metamorphopsia [Unknown]
  - Retinal pigment epithelial tear [Unknown]

NARRATIVE: CASE EVENT DATE: 20210223
